FAERS Safety Report 4411178-8 (Version None)
Quarter: 2004Q2

REPORT INFORMATION
  Report Type: 
  Country: None (occurrence: None)
  Receive Date: 20040630
  Receipt Date: 20040513
  Transmission Date: 20050107
  Serious: No
  Sender: FDA-Public Use
  Company Number: 04P-163-0260717-00

PATIENT
  Age: 55 Year
  Sex: Female
  Weight: 105.2345 kg

DRUGS (5)
  1. HUMIRA [Suspect]
     Indication: RHEUMATOID ARTHRITIS
     Dosage: 40 MG 1 IN 2 WK SUBCUTANEOUS
     Route: 058
     Dates: start: 20040101
  2. METOPROLOL [Concomitant]
  3. MELOXICAM [Concomitant]
  4. FAMOTIDINE [Concomitant]
  5. CETIRIZINE HCL [Concomitant]

REACTIONS (4)
  - ABDOMINAL DISTENSION [None]
  - DYSPNOEA [None]
  - PARAESTHESIA [None]
  - VISION BLURRED [None]
